FAERS Safety Report 17395467 (Version 1)
Quarter: 2020Q1

REPORT INFORMATION
  Report Type: Spontaneous
  Country: DE (occurrence: DE)
  Receive Date: 20200210
  Receipt Date: 20200210
  Transmission Date: 20200409
  Serious: Yes (Hospitalization, Other)
  Sender: FDA-Public Use
  Company Number: DE-CELGENEUS-DEU-20180800585

PATIENT
  Age: 75 Year
  Sex: Female
  Weight: 96.2 kg

DRUGS (16)
  1. ABRAXANE [Suspect]
     Active Substance: PACLITAXEL
     Dosage: DOSE NOT PROVIDED
     Route: 041
     Dates: start: 20150324
  2. DEXAMETHASONE. [Concomitant]
     Active Substance: DEXAMETHASONE
     Indication: PROPHYLAXIS
     Dosage: 8 MILLIGRAM
     Route: 048
     Dates: start: 20150217, end: 20150408
  3. ABRAXANE [Suspect]
     Active Substance: PACLITAXEL
     Dosage: DOSE NOT PROVIDED
     Route: 041
     Dates: start: 20150224
  4. ABRAXANE [Suspect]
     Active Substance: PACLITAXEL
     Dosage: DOSE NOT PROVIDED
     Route: 041
     Dates: start: 20150317
  5. TRASTUZUMAB. [Suspect]
     Active Substance: TRASTUZUMAB
     Route: 058
     Dates: start: 20150310, end: 20150421
  6. TRASTUZUMAB. [Suspect]
     Active Substance: TRASTUZUMAB
     Route: 058
     Dates: start: 20150803, end: 20160510
  7. METFORMIN [Concomitant]
     Active Substance: METFORMIN HYDROCHLORIDE
     Indication: DIABETES MELLITUS
     Dosage: DOSE NOT PROVIDED
     Route: 065
  8. ABRAXANE [Suspect]
     Active Substance: PACLITAXEL
     Dosage: DOSE NOT PROVIDED
     Route: 041
     Dates: start: 20150331, end: 20150408
  9. XARELTO [Concomitant]
     Active Substance: RIVAROXABAN
     Indication: ATRIAL FIBRILLATION
     Dosage: DOSE NOT PROVIDED
     Route: 065
  10. ACTRAPID [Concomitant]
     Active Substance: INSULIN HUMAN
     Indication: DIABETES MELLITUS
     Dosage: DOSE NOT PROVIDED
     Route: 065
  11. TRASTUZUMAB. [Suspect]
     Active Substance: TRASTUZUMAB
     Indication: BREAST CANCER
     Dosage: 600 MILLIGRAM
     Route: 058
     Dates: start: 20150217, end: 20150331
  12. VALSARTAN COMP [Concomitant]
     Active Substance: HYDROCHLOROTHIAZIDE\VALSARTAN
     Indication: HYPERTENSION
     Dosage: 320/25 MG
     Route: 048
  13. ABRAXANE [Suspect]
     Active Substance: PACLITAXEL
     Indication: BREAST CANCER
     Dosage: DOSE NOT PROVIDED
     Route: 041
     Dates: start: 20150303
  14. ABRAXANE [Suspect]
     Active Substance: PACLITAXEL
     Dosage: 125 MILLIGRAM/SQ. METER
     Route: 041
     Dates: start: 20150217, end: 20150408
  15. AMLODIPIN [Concomitant]
     Active Substance: AMLODIPINE BESYLATE
     Indication: HYPERTENSION
     Dosage: DOSE NOT PROVIDED
     Route: 048
  16. PROTAPHANE [Concomitant]
     Active Substance: INSULIN HUMAN
     Indication: DIABETES MELLITUS
     Dosage: DOSE NOT PROVIDED
     Route: 065

REACTIONS (6)
  - Cardiomyopathy [Recovering/Resolving]
  - Atrial fibrillation [Recovering/Resolving]
  - Ventricular extrasystoles [Not Recovered/Not Resolved]
  - Dry eye [Not Recovered/Not Resolved]
  - Right ventricular failure [Recovering/Resolving]
  - Nausea [Recovered/Resolved]

NARRATIVE: CASE EVENT DATE: 20150421
